FAERS Safety Report 15082781 (Version 2)
Quarter: 2018Q4

REPORT INFORMATION
  Report Type: Spontaneous
  Country: IT (occurrence: IT)
  Receive Date: 20180628
  Receipt Date: 20181219
  Transmission Date: 20190204
  Serious: Yes (Life-Threatening, Hospitalization, Other)
  Sender: FDA-Public Use
  Company Number: IT-AUROBINDO-AUR-APL-2018-033084

PATIENT
  Age: 3 Day
  Sex: Female
  Weight: 1.38 kg

DRUGS (1)
  1. IBUPROFEN. [Suspect]
     Active Substance: IBUPROFEN
     Indication: PATENT DUCTUS ARTERIOSUS
     Dosage: 10 MILLIGRAM/KILOGRAM, ONCE A DAY
     Route: 065

REACTIONS (4)
  - Pulmonary hypertension [Recovered/Resolved]
  - Persistent foetal circulation [Recovered/Resolved]
  - Condition aggravated [Recovered/Resolved]
  - Respiratory acidosis [Recovered/Resolved]
